FAERS Safety Report 4588553-4 (Version None)
Quarter: 2005Q1

REPORT INFORMATION
  Report Type: 
  Country: None (occurrence: None)
  Receive Date: 20050216
  Receipt Date: 20050216
  Transmission Date: 20050727
  Serious: Yes (Other)
  Sender: FDA-Public Use
  Company Number: None

PATIENT
  Age: 83 Year
  Sex: Male
  Weight: 85.2762 kg

DRUGS (4)
  1. FLOMAX [Suspect]
     Indication: BENIGN PROSTATIC HYPERPLASIA
     Dates: start: 20040824, end: 20050215
  2. DIOVAN [Concomitant]
  3. NORVASC [Concomitant]
  4. ASPIRIN [Concomitant]

REACTIONS (2)
  - IRIS DISORDER [None]
  - PROCEDURAL COMPLICATION [None]
